FAERS Safety Report 9054104 (Version 2)
Quarter: 2013Q1

REPORT INFORMATION
  Report Type: Spontaneous
  Country: AT (occurrence: AT)
  Receive Date: 20130208
  Receipt Date: 20130222
  Transmission Date: 20140127
  Serious: Yes (Other)
  Sender: FDA-Public Use
  Company Number: AT-PFIZER INC-2013048998

PATIENT
  Age: 83 Year
  Sex: Female

DRUGS (8)
  1. PANTOLOC [Suspect]
     Indication: NAUSEA
     Dosage: 40 MG, 2X/DAY
     Route: 048
     Dates: start: 20130113
  2. PANTOLOC [Suspect]
     Indication: ANAEMIA
  3. CIPRALEX [Concomitant]
     Dosage: UNK
  4. METOCLOPRAMIDE HYDROCHLORIDE [Concomitant]
     Dosage: UNK
  5. METAMIZOLE SODIUM [Concomitant]
     Dosage: UNK
  6. MAGNOSOLV ^ASTA MEDICA^ [Concomitant]
     Dosage: UNK
  7. AGAFFIN [Concomitant]
     Dosage: UNK
  8. HALDOL [Concomitant]
     Dosage: UNK

REACTIONS (6)
  - Gastrointestinal haemorrhage [Unknown]
  - Hiatus hernia [Unknown]
  - Mallory-Weiss syndrome [Unknown]
  - Tablet physical issue [Unknown]
  - Dysuria [Unknown]
  - Off label use [Unknown]
